FAERS Safety Report 18446006 (Version 2)
Quarter: 2021Q3

REPORT INFORMATION
  Report Type: Spontaneous
  Country: DE (occurrence: DE)
  Receive Date: 20201030
  Receipt Date: 20210813
  Transmission Date: 20211014
  Serious: Yes (Other)
  Sender: FDA-Public Use
  Company Number: DE-PFIZER INC-2020416669

PATIENT

DRUGS (1)
  1. CYTOTEC [Suspect]
     Active Substance: MISOPROSTOL
     Indication: LABOUR INDUCTION
     Dosage: 50 UG (TAKEN WITH WATER)
     Route: 064
     Dates: start: 20190901, end: 20190901

REACTIONS (2)
  - Foetal heart rate decreased [Recovered/Resolved]
  - Maternal exposure during delivery [Unknown]

NARRATIVE: CASE EVENT DATE: 20190901
